FAERS Safety Report 5655247-3 (Version None)
Quarter: 2008Q1

REPORT INFORMATION
  Report Type: 
  Country: None (occurrence: None)
  Receive Date: 20080307
  Receipt Date: 20080228
  Transmission Date: 20080703
  Serious: Yes (Other)
  Sender: FDA-Public Use
  Company Number: A0714109A

PATIENT
  Age: 50 Year
  Sex: Male

DRUGS (4)
  1. VALTREX [Suspect]
     Indication: HIV INFECTION
     Dosage: 1G PER DAY
     Dates: start: 20070901
  2. KIVEXA [Concomitant]
     Dosage: 1G PER DAY
     Dates: start: 20030101
  3. REYATAZ [Concomitant]
     Dosage: 300MGD PER DAY
     Dates: start: 20030101
  4. RITONAVIR [Concomitant]
     Dosage: 100MGD PER DAY

REACTIONS (3)
  - CYANOSIS [None]
  - LIP DISCOLOURATION [None]
  - OFF LABEL USE [None]
